FAERS Safety Report 20405398 (Version 1)
Quarter: 2022Q1

REPORT INFORMATION
  Report Type: Spontaneous
  Country: DE (occurrence: DE)
  Receive Date: 20220131
  Receipt Date: 20220131
  Transmission Date: 20220424
  Serious: Yes (Death, Other)
  Sender: FDA-Public Use
  Company Number: None

PATIENT
  Age: 47 Year
  Sex: Male
  Weight: 45 kg

DRUGS (4)
  1. EVEROLIMUS [Suspect]
     Active Substance: EVEROLIMUS
     Indication: Metastatic renal cell carcinoma
     Route: 048
     Dates: start: 20210128, end: 20220105
  2. EVEROLIMUS [Suspect]
     Active Substance: EVEROLIMUS
     Indication: Chemotherapy
  3. LENVATINIB [Suspect]
     Active Substance: LENVATINIB
     Indication: Chemotherapy
     Route: 048
     Dates: start: 20210128, end: 20220105
  4. LENVATINIB [Suspect]
     Active Substance: LENVATINIB
     Indication: Metastatic renal cell carcinoma

REACTIONS (15)
  - Urosepsis [Fatal]
  - Autoimmune colitis [Fatal]
  - Urinary tract infection staphylococcal [Fatal]
  - Hypothyroidism [Unknown]
  - Bladder pain [Unknown]
  - General physical health deterioration [Unknown]
  - Thyroiditis [Unknown]
  - Cystitis [Unknown]
  - Fatigue [Unknown]
  - Mucosal inflammation [Unknown]
  - Somnolence [Unknown]
  - Diarrhoea [Unknown]
  - Oral pain [Unknown]
  - Oral discomfort [Unknown]
  - Urinary hesitation [Unknown]

NARRATIVE: CASE EVENT DATE: 20210101
